FAERS Safety Report 9799946 (Version 3)
Quarter: 2014Q1

REPORT INFORMATION
  Report Type: Spontaneous
  Country: US (occurrence: US)
  Receive Date: 20140106
  Receipt Date: 20140321
  Transmission Date: 20141002
  Serious: Yes (Death, Hospitalization)
  Sender: FDA-Public Use
  Company Number: US-CELGENEUS-163-21880-13101960

PATIENT
  Age: 78 Year
  Sex: Male

DRUGS (2)
  1. REVLIMID [Suspect]
     Indication: PLASMA CELL MYELOMA
     Dosage: 15 MILLIGRAM
     Route: 048
     Dates: start: 201301, end: 2013
  2. KYPROLIS [Concomitant]
     Indication: PLASMA CELL MYELOMA
     Route: 065

REACTIONS (3)
  - Plasma cell myeloma [Fatal]
  - Pneumonia [Fatal]
  - Cardiac failure congestive [Fatal]
